FAERS Safety Report 25690912 (Version 1)
Quarter: 2025Q3

REPORT INFORMATION
  Report Type: Spontaneous
  Country: US (occurrence: US)
  Receive Date: 20250818
  Receipt Date: 20250818
  Transmission Date: 20251021
  Serious: Yes (Hospitalization)
  Sender: PIERRE FABRE MEDICAMENT
  Company Number: US-PFM-2025-03865

PATIENT
  Age: 0 Year
  Sex: Female
  Weight: 7.2 kg

DRUGS (1)
  1. HEMANGEOL [Suspect]
     Active Substance: PROPRANOLOL HYDROCHLORIDE
     Indication: Haemangioma
     Dosage: 2.8 ML, BID (2/DAY) (WITH FOOD, GIVEN 9 HOURS APART)
     Dates: start: 20250325

REACTIONS (2)
  - Ear infection [Recovering/Resolving]
  - Bronchitis [Recovering/Resolving]

NARRATIVE: CASE EVENT DATE: 20250801
